FAERS Safety Report 20078662 (Version 3)
Quarter: 2021Q4

REPORT INFORMATION
  Report Type: Spontaneous
  Country: US (occurrence: US)
  Receive Date: 20211117
  Receipt Date: 20211213
  Transmission Date: 20220304
  Serious: No
  Sender: FDA-Public Use
  Company Number: US-TEVA-2021-US-1976836

PATIENT
  Age: 60 Year
  Sex: Male

DRUGS (4)
  1. AUSTEDO [Suspect]
     Active Substance: DEUTETRABENAZINE
     Indication: Tardive dyskinesia
     Dosage: 24 MILLIGRAM DAILY; 14 DAYS
     Route: 065
     Dates: start: 202110
  2. AUSTEDO [Suspect]
     Active Substance: DEUTETRABENAZINE
     Dosage: 14 DAYS
     Route: 065
     Dates: start: 20210902
  3. AUSTEDO [Suspect]
     Active Substance: DEUTETRABENAZINE
     Dosage: 21 DAYS AND THEN 7 DAYS
     Route: 065
     Dates: start: 20210916
  4. AUSTEDO [Suspect]
     Active Substance: DEUTETRABENAZINE
     Dosage: THEN 7 DAYS OF 12MG
     Route: 065
     Dates: start: 202110

REACTIONS (2)
  - Dysarthria [Unknown]
  - Drooling [Unknown]

NARRATIVE: CASE EVENT DATE: 20211008
